FAERS Safety Report 7781828-7 (Version None)
Quarter: 2011Q3

REPORT INFORMATION
  Report Type: 
  Country: None (occurrence: None)
  Receive Date: 20110927
  Receipt Date: 20110923
  Transmission Date: 20111222
  Serious: Yes (Death, Hospitalization)
  Sender: FDA-Public Use
  Company Number: IT-BRISTOL-MYERS SQUIBB COMPANY-15653363

PATIENT
  Age: 75 Year
  Sex: Female

DRUGS (9)
  1. ORENCIA [Suspect]
     Route: 058
     Dates: start: 20090716, end: 20110303
  2. CONGESCOR [Concomitant]
     Route: 048
  3. ALENDRONATE SODIUM [Concomitant]
     Dosage: 1DF:5600 UNITS
  4. LANSOPRAZOLE [Concomitant]
     Route: 048
  5. PLAQUENIL [Concomitant]
     Route: 048
  6. LASIX [Concomitant]
     Route: 048
  7. RAMIPRIL [Concomitant]
     Route: 048
  8. PREDNISONE [Concomitant]
     Route: 048
  9. ALLOPURINOL [Concomitant]
     Route: 048

REACTIONS (6)
  - SHOCK [None]
  - CEREBROVASCULAR ACCIDENT [None]
  - RENAL FAILURE ACUTE [None]
  - CEREBRAL THROMBOSIS [None]
  - LACTIC ACIDOSIS [None]
  - RHEUMATOID ARTHRITIS [None]
